FAERS Safety Report 19072385 (Version 1)
Quarter: 2021Q1

REPORT INFORMATION
  Report Type: Spontaneous
  Country: US (occurrence: US)
  Receive Date: 20210329
  Receipt Date: 20210329
  Transmission Date: 20210420
  Serious: No
  Sender: FDA-Public Use
  Company Number: None

PATIENT
  Age: 50 Year
  Sex: Female
  Weight: 79 kg

DRUGS (6)
  1. ONDANSETRON [Concomitant]
     Active Substance: ONDANSETRON
     Dates: start: 20210329, end: 20210329
  2. MORPHINE [Concomitant]
     Active Substance: MORPHINE
     Dates: start: 20210329, end: 20210329
  3. GI COCKTAIL (MAG?AL PLUS XS, LIDOCAINE VISCOUS) [Concomitant]
     Dates: start: 20210329, end: 20210329
  4. METOCLOPRAMIDE. [Suspect]
     Active Substance: METOCLOPRAMIDE
     Indication: DYSTONIA
     Dosage: ?          OTHER FREQUENCY:ONCE;?
     Route: 040
     Dates: start: 20210329, end: 20210329
  5. METOCLOPRAMIDE. [Suspect]
     Active Substance: METOCLOPRAMIDE
     Indication: EXTRAPYRAMIDAL DISORDER
     Dosage: ?          OTHER FREQUENCY:ONCE;?
     Route: 040
     Dates: start: 20210329, end: 20210329
  6. SODIUM CHLORIDE 0.9% IV [Concomitant]
     Dates: start: 20210329, end: 20210329

REACTIONS (2)
  - Dystonia [None]
  - Extrapyramidal disorder [None]

NARRATIVE: CASE EVENT DATE: 20210329
